FAERS Safety Report 8086341-8 (Version None)
Quarter: 2012Q1

REPORT INFORMATION
  Report Type: 
  Country: None (occurrence: None)
  Receive Date: 20120128
  Receipt Date: 20110426
  Transmission Date: 20120608
  Serious: No
  Sender: FDA-Public Use
  Company Number: US-ABBOTT-11P-163-0721941-00

PATIENT
  Age: 31 Year
  Sex: Female

DRUGS (8)
  1. MULTI-VITAMINS [Concomitant]
     Indication: PRODUCT USED FOR UNKNOWN INDICATION
     Dosage: DAILY
  2. VITAMIN D [Concomitant]
     Indication: PRODUCT USED FOR UNKNOWN INDICATION
     Dosage: 50,000 UNITS WEEKLY
  3. LOVAZA [Concomitant]
     Indication: SUPPLEMENTATION THERAPY
  4. CALCIUM [Concomitant]
     Indication: MINERAL SUPPLEMENTATION
  5. ADDERALL 5 [Concomitant]
     Indication: ATTENTION DEFICIT/HYPERACTIVITY DISORDER
     Dosage: DAILY
  6. VITAMIN B-12 [Concomitant]
     Indication: ILEOCOLECTOMY
     Dosage: MONTHLY
     Route: 050
  7. CLARITIN [Concomitant]
     Indication: HYPERSENSITIVITY
  8. HUMIRA [Suspect]
     Indication: CROHN'S DISEASE
     Dates: start: 20110201

REACTIONS (2)
  - INJECTION SITE HAEMORRHAGE [None]
  - INJECTION SITE REACTION [None]
